FAERS Safety Report 17109652 (Version 1)
Quarter: 2019Q4

REPORT INFORMATION
  Report Type: Spontaneous
  Country: US (occurrence: US)
  Receive Date: 20191107
  Receipt Date: 20191107
  Transmission Date: 20200122
  Serious: No
  Sender: FDA-Public Use
  Company Number: None

PATIENT
  Age: 69 Year
  Sex: Female
  Weight: 76.2 kg

DRUGS (12)
  1. MELOXICAM. [Concomitant]
     Active Substance: MELOXICAM
  2. JARDIANCE [Suspect]
     Active Substance: EMPAGLIFLOZIN
     Indication: GLYCOSYLATED HAEMOGLOBIN INCREASED
     Dosage: ?          QUANTITY:1 DF DOSAGE FORM;?
     Route: 048
     Dates: start: 20190602, end: 20191023
  3. VITAMIN B12 [Concomitant]
     Active Substance: CYANOCOBALAMIN
  4. ONE TOUCH ULTRA BLUE [Concomitant]
  5. METOPROLOL ER [Concomitant]
     Active Substance: METOPROLOL SUCCINATE
  6. METFORMIN ER [Concomitant]
     Active Substance: METFORMIN HYDROCHLORIDE
  7. LATANAPROST [Concomitant]
     Active Substance: LATANOPROST
  8. LEVOTHYROXIN [Concomitant]
     Active Substance: LEVOTHYROXINE
  9. GLIPIZIDE ER [Concomitant]
     Active Substance: GLIPIZIDE
  10. BUSPIRONE [Concomitant]
     Active Substance: BUSPIRONE HYDROCHLORIDE
  11. VITAM D [Concomitant]
  12. LINSINOPRIL [Concomitant]
     Active Substance: LISINOPRIL

REACTIONS (6)
  - Vulvovaginal discomfort [None]
  - Therapy cessation [None]
  - Pain [None]
  - Vulvovaginal swelling [None]
  - Therapy change [None]
  - Vulvovaginal inflammation [None]

NARRATIVE: CASE EVENT DATE: 20191010
